FAERS Safety Report 18464885 (Version 11)
Quarter: 2022Q4

REPORT INFORMATION
  Report Type: Other
  Country: CA (occurrence: None)
  Receive Date: 20201105
  Receipt Date: 20221212
  Transmission Date: 20230112
  Serious: Yes (Other)
  Sender: FDA-Public Use
  Company Number: CA-ROCHE-2453592

PATIENT
  Age: 30 Year
  Sex: Female

DRUGS (10)
  1. OCREVUS [Suspect]
     Active Substance: OCRELIZUMAB
     Indication: Relapsing-remitting multiple sclerosis
     Dosage: 300 MG AT DAY 0 AND 14, THEN 600 MG EVERY 6 MONTH
     Route: 042
     Dates: start: 20181009
  2. ABILIFY [Concomitant]
     Active Substance: ARIPIPRAZOLE
  3. LITHIUM [Concomitant]
     Active Substance: LITHIUM
  4. GABAPENTIN [Concomitant]
     Active Substance: GABAPENTIN
  5. EFFEXOR [Concomitant]
     Active Substance: VENLAFAXINE HYDROCHLORIDE
  6. CLONAZEPAM [Concomitant]
     Active Substance: CLONAZEPAM
     Dosage: 1 IN AM AND 1 IN LUNCH
  7. OLANZAPINE [Concomitant]
     Active Substance: OLANZAPINE
  8. MIRENA [Concomitant]
     Active Substance: LEVONORGESTREL
  9. CETIRIZINE HYDROCHLORIDE [Concomitant]
     Active Substance: CETIRIZINE HYDROCHLORIDE
  10. CLONAZEPAM [Concomitant]
     Active Substance: CLONAZEPAM

REACTIONS (20)
  - Nasopharyngitis [Recovering/Resolving]
  - Pain [Not Recovered/Not Resolved]
  - Perioral dermatitis [Not Recovered/Not Resolved]
  - Pruritus [Not Recovered/Not Resolved]
  - Fatigue [Unknown]
  - Arthralgia [Not Recovered/Not Resolved]
  - B-lymphocyte count increased [Unknown]
  - Pain [Not Recovered/Not Resolved]
  - Influenza [Recovered/Resolved]
  - Hypersomnia [Unknown]
  - Tremor [Not Recovered/Not Resolved]
  - T-lymphocyte count decreased [Unknown]
  - Blood test abnormal [Unknown]
  - Lymphocyte count decreased [Unknown]
  - Dermatitis [Recovering/Resolving]
  - Insomnia [Unknown]
  - Cognitive disorder [Unknown]
  - Disturbance in attention [Unknown]
  - Multiple sclerosis [Not Recovered/Not Resolved]
  - Seasonal allergy [Unknown]

NARRATIVE: CASE EVENT DATE: 20190401
